FAERS Safety Report 23620917 (Version 1)
Quarter: 2024Q1

REPORT INFORMATION
  Report Type: Spontaneous
  Country: PT (occurrence: PT)
  Receive Date: 20240312
  Receipt Date: 20240312
  Transmission Date: 20240409
  Serious: Yes (Other)
  Sender: FDA-Public Use
  Company Number: PT-MEDEXUS PHARMA, INC.-2024MED00122

PATIENT
  Age: 75 Year
  Sex: Female

DRUGS (2)
  1. METHOTREXATE [Suspect]
     Active Substance: METHOTREXATE
     Indication: Rheumatoid arthritis
  2. CORTICOSTEROID NOS [Concomitant]
     Active Substance: CORTICOSTEROID NOS
     Indication: Rheumatoid arthritis

REACTIONS (1)
  - Myelodysplastic syndrome with excess blasts [Not Recovered/Not Resolved]
